FAERS Safety Report 5714932-5 (Version None)
Quarter: 2008Q2

REPORT INFORMATION
  Report Type: 
  Country: None (occurrence: None)
  Receive Date: 20080423
  Receipt Date: 20080414
  Transmission Date: 20081010
  Serious: Yes (Other)
  Sender: FDA-Public Use
  Company Number: ES-ASTRAZENECA-2008AC01000

PATIENT
  Age: 69 Year
  Sex: Female

DRUGS (10)
  1. ROPIVACAINE [Suspect]
     Indication: ANAESTHESIA
     Dosage: TEST DOSE
     Route: 053
  2. ROPIVACAINE [Suspect]
     Dosage: TEST DOSE
     Route: 053
  3. ROPIVACAINE [Suspect]
     Dosage: TEST DOSE
     Route: 053
  4. SULPIRIDE [Concomitant]
  5. DOPIDOGREL [Concomitant]
  6. PERINDROPIL [Concomitant]
  7. DILTIAZEM [Concomitant]
  8. TRANSDERMAL NITROGYLCERIN [Concomitant]
     Route: 062
  9. ATORVASTATIN CALCIUM [Concomitant]
  10. MIDAZOLAM HCL [Concomitant]

REACTIONS (5)
  - BRADYCARDIA [None]
  - CEREBROVASCULAR DISORDER [None]
  - HYPOTENSION [None]
  - LOSS OF CONSCIOUSNESS [None]
  - RESPIRATORY ARREST [None]
